FAERS Safety Report 14248298 (Version 1)
Quarter: 2017Q4

REPORT INFORMATION
  Report Type: Spontaneous
  Country: TR (occurrence: TR)
  Receive Date: 20171204
  Receipt Date: 20171204
  Transmission Date: 20180321
  Serious: Yes (Death, Hospitalization)
  Sender: FDA-Public Use
  Company Number: TR-009507513-1712TUR001218

PATIENT
  Age: 5 Day
  Weight: 1.65 kg

DRUGS (3)
  1. DESLORATADINE. [Suspect]
     Active Substance: DESLORATADINE
     Indication: PRODUCT USED FOR UNKNOWN INDICATION
     Dosage: 5 MG, UNK
  2. MONTELUKAST SODIUM. [Suspect]
     Active Substance: MONTELUKAST SODIUM
     Indication: PRODUCT USED FOR UNKNOWN INDICATION
     Dosage: 10 MG, UNK
  3. BECLOMETHASONE DIPROPIONATE (+) FORMOTEROL FUMARATE [Suspect]
     Active Substance: BECLOMETHASONE DIPROPIONATE\FORMOTEROL FUMARATE
     Indication: ASTHMA
     Dosage: UNK

REACTIONS (8)
  - Respiratory distress [Unknown]
  - Premature baby [Unknown]
  - Foetal exposure during pregnancy [Unknown]
  - Pulmonary haemorrhage [Fatal]
  - Duodenal atresia [Unknown]
  - Adrenogenital syndrome [Unknown]
  - Low birth weight baby [Unknown]
  - Barth syndrome [Unknown]
